FAERS Safety Report 25528517 (Version 1)
Quarter: 2025Q3

REPORT INFORMATION
  Report Type: Spontaneous
  Country: US (occurrence: US)
  Receive Date: 20250708
  Receipt Date: 20250708
  Transmission Date: 20251021
  Serious: No
  Sender: KARYOPHARM THERAPEUTICS
  Company Number: US-KARYOPHARM-2025KPT100456

PATIENT

DRUGS (8)
  1. SELINEXOR [Suspect]
     Active Substance: SELINEXOR
     Indication: Plasma cell myeloma
     Route: 048
  2. AMLODIPINE [Concomitant]
     Active Substance: AMLODIPINE BESYLATE
  3. DECADRON [Concomitant]
     Active Substance: DEXAMETHASONE
  4. LOSARTAN [Concomitant]
     Active Substance: LOSARTAN
  5. THYROID [Concomitant]
     Active Substance: LEVOTHYROXINE\LIOTHYRONINE
  6. ONDANSETRON [Concomitant]
     Active Substance: ONDANSETRON
  7. TAMOXIFEN [Concomitant]
     Active Substance: TAMOXIFEN
  8. ZYPREXA [Concomitant]
     Active Substance: OLANZAPINE

REACTIONS (1)
  - Decreased appetite [Unknown]
